FAERS Safety Report 5783424-X (Version None)
Quarter: 2008Q2

REPORT INFORMATION
  Report Type: 
  Country: None (occurrence: None)
  Receive Date: 20080605
  Receipt Date: 20080317
  Transmission Date: 20081010
  Serious: No
  Sender: FDA-Public Use
  Company Number: A0715769A

PATIENT
  Age: 63 Year
  Sex: Female
  Weight: 71.4 kg

DRUGS (4)
  1. ALLI [Suspect]
     Route: 048
  2. ZOLOFT [Concomitant]
  3. WELLBUTRIN [Concomitant]
  4. CLONAZEPAM [Concomitant]

REACTIONS (9)
  - ABDOMINAL DISTENSION [None]
  - CONSTIPATION [None]
  - DIARRHOEA [None]
  - FLATULENCE [None]
  - FREQUENT BOWEL MOVEMENTS [None]
  - MALAISE [None]
  - NASOPHARYNGITIS [None]
  - STEATORRHOEA [None]
  - WEIGHT FLUCTUATION [None]
